FAERS Safety Report 5512954-0 (Version None)
Quarter: 2007Q4

REPORT INFORMATION
  Report Type: 
  Country: None (occurrence: None)
  Receive Date: 20071112
  Receipt Date: 20071108
  Transmission Date: 20080405
  Serious: Yes (Hospitalization)
  Sender: FDA-Public Use
  Company Number: FR-MERCK-0703FRA00092

PATIENT
  Age: 78 Year
  Sex: Male

DRUGS (5)
  1. VYTORIN [Suspect]
     Indication: DYSLIPIDAEMIA
     Route: 048
     Dates: start: 20070101, end: 20070601
  2. VYTORIN [Suspect]
     Route: 048
     Dates: start: 20070716
  3. DILTIAZEM HYDROCHLORIDE [Suspect]
     Indication: HYPERTENSION
     Route: 048
  4. ASPIRIN LYSINE [Concomitant]
     Indication: CARDIOVASCULAR EVENT PROPHYLAXIS
     Route: 048
  5. OFLOXACIN [Suspect]
     Indication: BLADDER CANCER
     Route: 065
     Dates: start: 20070801, end: 20070901

REACTIONS (6)
  - BLADDER CANCER [None]
  - DRUG INTERACTION [None]
  - MUSCLE ATROPHY [None]
  - MYALGIA [None]
  - MYELODYSPLASTIC SYNDROME [None]
  - PULMONARY EMBOLISM [None]
